FAERS Safety Report 20210965 (Version 1)
Quarter: 2021Q4

REPORT INFORMATION
  Report Type: Spontaneous
  Country: US (occurrence: US)
  Receive Date: 20211221
  Receipt Date: 20211221
  Transmission Date: 20220304
  Serious: No
  Sender: FDA-Public Use
  Company Number: US-PFIZER INC-2021476278

PATIENT
  Sex: Female

DRUGS (1)
  1. ZOLOFT [Suspect]
     Active Substance: SERTRALINE HYDROCHLORIDE
     Dosage: UNK
     Dates: start: 202002

REACTIONS (4)
  - Low density lipoprotein increased [Unknown]
  - Blood cholesterol increased [Unknown]
  - Blood iron decreased [Unknown]
  - Weight decreased [Unknown]
